FAERS Safety Report 5029387-6 (Version None)
Quarter: 2006Q2

REPORT INFORMATION
  Report Type: 
  Country: None (occurrence: None)
  Receive Date: 20060614
  Receipt Date: 20060602
  Transmission Date: 20061013
  Serious: Yes (Hospitalization)
  Sender: FDA-Public Use
  Company Number: 2006-143447-NL

PATIENT
  Age: 27 Year
  Sex: Female
  Weight: 63.5 kg

DRUGS (4)
  1. NUVARING [Suspect]
     Indication: CONTRACEPTION
     Dosage: VAGINAL, 3  WEEKS IN, 1 WEEK OUT
     Dates: start: 20020101
  2. ALLERGY MEDICATION (NOS) [Concomitant]
  3. MULTI-VITAMIN [Concomitant]
  4. ACIDOPHILUS [Concomitant]

REACTIONS (7)
  - APHAGIA [None]
  - DEHYDRATION [None]
  - DRUG INEFFECTIVE [None]
  - IRRITABLE BOWEL SYNDROME [None]
  - PYREXIA [None]
  - SYSTEMIC MYCOSIS [None]
  - THERAPY NON-RESPONDER [None]
